FAERS Safety Report 18746476 (Version 1)
Quarter: 2021Q1

REPORT INFORMATION
  Report Type: Spontaneous
  Country: US (occurrence: US)
  Receive Date: 20210114
  Receipt Date: 20210114
  Transmission Date: 20210419
  Serious: No
  Sender: FDA-Public Use
  Company Number: None

PATIENT
  Sex: Male

DRUGS (1)
  1. GLATIRAMTER ACETATE (12X1ML) 40MG/ML MYLAN [Suspect]
     Active Substance: GLATIRAMER ACETATE
     Indication: MULTIPLE SCLEROSIS
     Route: 058
     Dates: start: 20180309

REACTIONS (8)
  - Drug ineffective [None]
  - Pyrexia [None]
  - Gait inability [None]
  - Dyspnoea [None]
  - SARS-CoV-2 test negative [None]
  - Disease progression [None]
  - Injection site pain [None]
  - Epistaxis [None]
